FAERS Safety Report 17541063 (Version 1)
Quarter: 2020Q1

REPORT INFORMATION
  Report Type: Spontaneous
  Country: IT (occurrence: IT)
  Receive Date: 20200313
  Receipt Date: 20200313
  Transmission Date: 20200409
  Serious: Yes (Hospitalization)
  Sender: FDA-Public Use
  Company Number: IT-VERTEX PHARMACEUTICALS-2020-005212

PATIENT
  Sex: Female

DRUGS (2)
  1. ORKAMBI [Suspect]
     Active Substance: IVACAFTOR\LUMACAFTOR
     Indication: CYSTIC FIBROSIS
     Dosage: LUMACAFTOR/IVACAFTOR, 2 TABS
     Route: 048
  2. ORKAMBI [Suspect]
     Active Substance: IVACAFTOR\LUMACAFTOR
     Dosage: LUMACAFTOR/IVACAFTOR, REDUCED DOSE
     Route: 048

REACTIONS (2)
  - Dyspnoea [Unknown]
  - Infective pulmonary exacerbation of cystic fibrosis [Unknown]
